FAERS Safety Report 14760200 (Version 1)
Quarter: 2018Q2

REPORT INFORMATION
  Report Type: Spontaneous
  Country: FR (occurrence: FR)
  Receive Date: 20180413
  Receipt Date: 20180413
  Transmission Date: 20180711
  Serious: Yes (Life-Threatening)
  Sender: FDA-Public Use
  Company Number: FR-009507513-1804FRA002792

PATIENT
  Age: 87 Year
  Sex: Male

DRUGS (6)
  1. GLIMEPIRIDE. [Suspect]
     Active Substance: GLIMEPIRIDE
     Indication: DRUG ADMINISTRATION ERROR
     Dosage: IN TOTAL
     Route: 048
     Dates: start: 20180224, end: 20180224
  2. TELMISARTAN. [Suspect]
     Active Substance: TELMISARTAN
     Indication: DRUG ADMINISTRATION ERROR
     Dosage: IN TOTAL
     Route: 048
     Dates: start: 20180224, end: 20180224
  3. CELIPROLOL HYDROCHLORIDE [Suspect]
     Active Substance: CELIPROLOL HYDROCHLORIDE
     Indication: DRUG ADMINISTRATION ERROR
     Dosage: IN TOTAL
     Route: 048
     Dates: start: 20180224, end: 20180224
  4. RILMENIDINE [Suspect]
     Active Substance: RILMENIDINE
     Indication: DRUG ADMINISTRATION ERROR
     Dosage: IN TOTAL
     Route: 048
     Dates: start: 20180224, end: 20180224
  5. FLECAINE [Suspect]
     Active Substance: FLECAINIDE
     Indication: DRUG ADMINISTRATION ERROR
     Dosage: IN TOTAL
     Route: 048
     Dates: start: 20180224, end: 20180224
  6. JANUMET [Suspect]
     Active Substance: METFORMIN HYDROCHLORIDE\SITAGLIPTIN PHOSPHATE
     Indication: DRUG ADMINISTRATION ERROR
     Dosage: IN TOTAL
     Route: 048
     Dates: start: 20180224, end: 20180224

REACTIONS (3)
  - Hypoglycaemic coma [Recovered/Resolved]
  - Atrioventricular block complete [Recovered/Resolved]
  - Bradycardia [Recovered/Resolved]

NARRATIVE: CASE EVENT DATE: 20180225
